FAERS Safety Report 5151748-5 (Version None)
Quarter: 2006Q4

REPORT INFORMATION
  Report Type: 
  Country: None (occurrence: None)
  Receive Date: 20061107
  Receipt Date: 20061024
  Transmission Date: 20070319
  Serious: Yes (Other)
  Sender: FDA-Public Use
  Company Number: CHNY2006GB02842

PATIENT
  Age: 52 Year
  Sex: Male
  Weight: 80 kg

DRUGS (2)
  1. HYOSCINE HBR HYT [Suspect]
     Indication: MOTION SICKNESS
     Dosage: 1.5 MG, TRANSDERMAL
     Route: 062
     Dates: start: 20060701, end: 20060705
  2. CIALIS [Concomitant]

REACTIONS (1)
  - PRIAPISM [None]
